FAERS Safety Report 13837532 (Version 1)
Quarter: 2017Q3

REPORT INFORMATION
  Report Type: Other
  Country: GB (occurrence: US)
  Receive Date: 20170804
  Receipt Date: 20170804
  Transmission Date: 20171127
  Serious: Yes (Life-Threatening, Hospitalization, Other)
  Sender: FDA-Public Use
  Company Number: US-INTERNATIONAL MEDICATION SYSTEMS, LIMITED-2024199

PATIENT
  Age: 33 Year
  Sex: Female
  Weight: 65 kg

DRUGS (4)
  1. LIDOCAINE 2% [Suspect]
     Active Substance: LIDOCAINE
     Indication: ANAESTHESIA
     Route: 058
  2. SUXAMETHONIUM [Concomitant]
     Active Substance: SUCCINYLCHOLINE
  3. PROPOFOL. [Concomitant]
     Active Substance: PROPOFOL
  4. EPINEPHRINE 1% [Concomitant]
     Route: 058

REACTIONS (3)
  - Overdose [Recovered/Resolved]
  - Cardiac arrest [Recovered/Resolved]
  - Toxicity to various agents [Recovered/Resolved]
